FAERS Safety Report 11032632 (Version 4)
Quarter: 2016Q3

REPORT INFORMATION
  Report Type: Spontaneous
  Country: US (occurrence: US)
  Receive Date: 20150415
  Receipt Date: 20160705
  Transmission Date: 20161109
  Serious: Yes (Disabling, Other)
  Sender: FDA-Public Use
  Company Number: US-009507513-1504USA015061

PATIENT
  Sex: Male

DRUGS (5)
  1. PROPECIA [Suspect]
     Active Substance: FINASTERIDE
     Indication: ALOPECIA
     Dosage: 1 MG, QD
     Route: 048
     Dates: start: 200904, end: 201004
  2. PROPECIA [Suspect]
     Active Substance: FINASTERIDE
     Dosage: 1 MG, QD
     Route: 048
     Dates: start: 2011, end: 2012
  3. PROPECIA [Suspect]
     Active Substance: FINASTERIDE
     Dosage: 1 MG QD
     Route: 048
     Dates: start: 201109, end: 201205
  4. CRESTOR [Concomitant]
     Active Substance: ROSUVASTATIN CALCIUM
     Indication: DYSLIPIDAEMIA
  5. CRESTOR [Concomitant]
     Active Substance: ROSUVASTATIN CALCIUM
     Indication: BLOOD CHOLESTEROL INCREASED
     Dosage: UNK
     Dates: start: 2004

REACTIONS (19)
  - Brain injury [Not Recovered/Not Resolved]
  - Penis disorder [Not Recovered/Not Resolved]
  - Blood pressure increased [Unknown]
  - Insomnia [Recovered/Resolved]
  - Dysgeusia [Unknown]
  - Back pain [Unknown]
  - Erectile dysfunction [Not Recovered/Not Resolved]
  - Libido decreased [Unknown]
  - Ejaculation disorder [Unknown]
  - Endocrine disorder [Not Recovered/Not Resolved]
  - Depression [Not Recovered/Not Resolved]
  - Anxiety [Not Recovered/Not Resolved]
  - Haematuria [Unknown]
  - Sexual dysfunction [Not Recovered/Not Resolved]
  - Hormone level abnormal [Unknown]
  - Genital hypoaesthesia [Unknown]
  - Disturbance in attention [Not Recovered/Not Resolved]
  - Breast enlargement [Not Recovered/Not Resolved]
  - Hypothyroidism [Unknown]

NARRATIVE: CASE EVENT DATE: 2009
